FAERS Safety Report 4572943-X (Version None)
Quarter: 2005Q1

REPORT INFORMATION
  Report Type: 
  Country: None (occurrence: None)
  Receive Date: 20050203
  Receipt Date: 20050118
  Transmission Date: 20050727
  Serious: Yes (Hospitalization)
  Sender: FDA-Public Use
  Company Number: MEDI-0002523

PATIENT
  Age: 8 Month
  Sex: Female

DRUGS (5)
  1. SYNAGIS [Suspect]
     Indication: ANTIVIRAL PROPHYLAXIS
     Dosage: 1 IN 30 D, INTRAMUSCULAR
     Route: 030
  2. CAPTOPRIL [Concomitant]
  3. FUROSEMIDE [Concomitant]
  4. LIQUID IRON SUPPLEMENT (IRON) [Concomitant]
  5. TRIMETHOPRIM [Concomitant]

REACTIONS (3)
  - ABDOMINAL DISTENSION [None]
  - DIARRHOEA [None]
  - PNEUMONITIS [None]
